APPROVED DRUG PRODUCT: PILOCARPINE HYDROCHLORIDE
Active Ingredient: PILOCARPINE HYDROCHLORIDE
Strength: 4%
Dosage Form/Route: SOLUTION/DROPS;OPHTHALMIC
Application: A210384 | Product #003 | TE Code: AT
Applicant: SOMERSET THERAPEUTICS LLC
Approved: Nov 25, 2019 | RLD: No | RS: No | Type: RX